FAERS Safety Report 6375202-8 (Version None)
Quarter: 2009Q3

REPORT INFORMATION
  Report Type: 
  Country: None (occurrence: None)
  Receive Date: 20090924
  Receipt Date: 20090916
  Transmission Date: 20100115
  Serious: Yes (Death, Hospitalization, Other)
  Sender: FDA-Public Use
  Company Number: US-BAXTER-2009BH012988

PATIENT
  Age: 60 Year
  Sex: Female

DRUGS (6)
  1. HEPARIN SODIUM INJECTION [Suspect]
     Indication: THROMBOSIS PROPHYLAXIS
     Route: 065
     Dates: start: 20070913, end: 20070924
  2. HEPARIN SODIUM INJECTION [Suspect]
     Route: 065
     Dates: start: 20070926, end: 20071004
  3. KLOR-CON [Concomitant]
     Indication: DRUG USE FOR UNKNOWN INDICATION
     Route: 048
  4. PROCHLORPERAZINE [Concomitant]
     Indication: DRUG USE FOR UNKNOWN INDICATION
     Route: 048
  5. LASIX [Concomitant]
     Indication: DRUG USE FOR UNKNOWN INDICATION
     Route: 048
  6. EPOETIN NOS [Concomitant]
     Indication: DRUG USE FOR UNKNOWN INDICATION
     Route: 065

REACTIONS (19)
  - ABDOMINAL DISTENSION [None]
  - ABDOMINAL PAIN [None]
  - CARDIO-RESPIRATORY ARREST [None]
  - CARDIOVASCULAR DISORDER [None]
  - CONDITION AGGRAVATED [None]
  - CONGENITAL CYSTIC KIDNEY DISEASE [None]
  - ECCHYMOSIS [None]
  - HYPOTENSION [None]
  - HYPOXIA [None]
  - MALNUTRITION [None]
  - METABOLIC ACIDOSIS [None]
  - MULTI-ORGAN FAILURE [None]
  - RENAL FAILURE CHRONIC [None]
  - RESPIRATORY DISTRESS [None]
  - RESPIRATORY FAILURE [None]
  - SEPSIS [None]
  - THROMBOCYTOPENIA [None]
  - VENTRICULAR TACHYCARDIA [None]
  - VOMITING [None]
